FAERS Safety Report 8103941-7 (Version None)
Quarter: 2012Q1

REPORT INFORMATION
  Report Type: 
  Country: None (occurrence: None)
  Receive Date: 20120201
  Receipt Date: 20120127
  Transmission Date: 20120608
  Serious: Yes (Hospitalization, Other)
  Sender: FDA-Public Use
  Company Number: PHHY2012BR007537

PATIENT
  Sex: Male

DRUGS (2)
  1. MEMANTINE HYDROCHLORIDE [Concomitant]
     Indication: DEMENTIA ALZHEIMER'S TYPE
     Dosage: HALF A TABLET A DAY FOR 2 WEEKS
  2. EXELON [Suspect]
     Indication: DEMENTIA ALZHEIMER'S TYPE
     Dosage: 18 MG/ 10CM2, ONCE A DAY
     Route: 062

REACTIONS (9)
  - FEMUR FRACTURE [None]
  - URINARY TRACT INFECTION [None]
  - CONFUSIONAL STATE [None]
  - PNEUMONIA ASPIRATION [None]
  - WRONG TECHNIQUE IN DRUG USAGE PROCESS [None]
  - BEDRIDDEN [None]
  - PNEUMONIA [None]
  - AGITATION [None]
  - CONDITION AGGRAVATED [None]
